FAERS Safety Report 20651462 (Version 5)
Quarter: 2022Q4

REPORT INFORMATION
  Report Type: Report from Study
  Country: DE (occurrence: DE)
  Receive Date: 20220330
  Receipt Date: 20221004
  Transmission Date: 20230113
  Serious: Yes (Other)
  Sender: FDA-Public Use
  Company Number: DE-TAKEDA-2022TUS019080

PATIENT
  Age: 6 Year
  Sex: Male

DRUGS (6)
  1. ADVATE [Suspect]
     Active Substance: ANTIHEMOPHILIC FACTOR, HUMAN RECOMBINANT
     Indication: Factor VIII deficiency
     Dosage: 1000 INTERNATIONAL UNIT, 1/WEEK
     Route: 042
     Dates: start: 20201105
  2. ADVATE [Suspect]
     Active Substance: ANTIHEMOPHILIC FACTOR, HUMAN RECOMBINANT
     Indication: Factor VIII deficiency
     Dosage: 1000 INTERNATIONAL UNIT, 1/WEEK
     Route: 042
     Dates: start: 20201105
  3. ADVATE [Suspect]
     Active Substance: ANTIHEMOPHILIC FACTOR, HUMAN RECOMBINANT
     Indication: Factor VIII deficiency
     Dosage: 1000 INTERNATIONAL UNIT, 1/WEEK
     Route: 042
     Dates: start: 20201105
  4. ADVATE [Suspect]
     Active Substance: ANTIHEMOPHILIC FACTOR, HUMAN RECOMBINANT
     Dosage: 1000 INTERNATIONAL UNIT, 1/WEEK
     Route: 042
     Dates: start: 20201105
  5. ADVATE [Suspect]
     Active Substance: ANTIHEMOPHILIC FACTOR, HUMAN RECOMBINANT
     Dosage: 1000 INTERNATIONAL UNIT, 1/WEEK
     Route: 042
     Dates: start: 20201105
  6. ADVATE [Suspect]
     Active Substance: ANTIHEMOPHILIC FACTOR, HUMAN RECOMBINANT
     Dosage: 1000 INTERNATIONAL UNIT, 1/WEEK
     Route: 042
     Dates: start: 20201105

REACTIONS (9)
  - Haemarthrosis [Recovering/Resolving]
  - Blood urine [Recovered/Resolved]
  - Renal cyst [Unknown]
  - Skin laceration [Recovering/Resolving]
  - Pain [Recovered/Resolved]
  - Joint swelling [Recovered/Resolved]
  - Joint injury [Recovered/Resolved]
  - Limb injury [Recovering/Resolving]
  - Expired product administered [Unknown]

NARRATIVE: CASE EVENT DATE: 20220215
